FAERS Safety Report 9083274 (Version 1)
Quarter: 2013Q1

REPORT INFORMATION
  Report Type: Spontaneous
  Country: US (occurrence: US)
  Receive Date: 20130131
  Receipt Date: 20130131
  Transmission Date: 20140127
  Serious: No
  Sender: FDA-Public Use
  Company Number: US-ABBOTT-12P-163-0990503-00

PATIENT
  Age: 65 Year
  Sex: Female
  Weight: 60.38 kg

DRUGS (18)
  1. HUMIRA [Suspect]
     Indication: RHEUMATOID ARTHRITIS
     Dates: start: 2011
  2. ADDERALL [Concomitant]
     Indication: PRODUCT USED FOR UNKNOWN INDICATION
  3. COLCHICINE [Concomitant]
     Indication: PRODUCT USED FOR UNKNOWN INDICATION
  4. CRESTOR [Concomitant]
     Indication: PRODUCT USED FOR UNKNOWN INDICATION
  5. EXCEDRIN [Concomitant]
     Indication: PRODUCT USED FOR UNKNOWN INDICATION
  6. FOLIC ACID [Concomitant]
     Indication: VITAMIN SUPPLEMENTATION
  7. HYZAAR [Concomitant]
     Indication: PRODUCT USED FOR UNKNOWN INDICATION
  8. IMMUNOGLOBULIN [Concomitant]
     Indication: PRODUCT USED FOR UNKNOWN INDICATION
  9. MERIPEX [Concomitant]
     Indication: PRODUCT USED FOR UNKNOWN INDICATION
  10. OXYCODONE [Concomitant]
     Indication: PRODUCT USED FOR UNKNOWN INDICATION
  11. PREDNISONE [Concomitant]
     Indication: PRODUCT USED FOR UNKNOWN INDICATION
  12. PROVIGIL [Concomitant]
     Indication: PRODUCT USED FOR UNKNOWN INDICATION
  13. PROZAC [Concomitant]
     Indication: PRODUCT USED FOR UNKNOWN INDICATION
  14. TAMOXIFEN [Concomitant]
     Indication: PRODUCT USED FOR UNKNOWN INDICATION
  15. VALTREX [Concomitant]
     Indication: PRODUCT USED FOR UNKNOWN INDICATION
  16. VITAMIN B12 [Concomitant]
     Indication: PRODUCT USED FOR UNKNOWN INDICATION
  17. VITAMIN D [Concomitant]
     Indication: PRODUCT USED FOR UNKNOWN INDICATION
  18. WELLBUTRIN [Concomitant]
     Indication: PRODUCT USED FOR UNKNOWN INDICATION

REACTIONS (4)
  - Device malfunction [Not Recovered/Not Resolved]
  - Injection site pain [Recovered/Resolved]
  - Burning sensation [Recovered/Resolved]
  - Incorrect dose administered by device [Not Recovered/Not Resolved]
